FAERS Safety Report 25025574 (Version 1)
Quarter: 2025Q1

REPORT INFORMATION
  Report Type: Spontaneous
  Country: US (occurrence: US)
  Receive Date: 20250228
  Receipt Date: 20250228
  Transmission Date: 20250409
  Serious: No
  Sender: NEUROCRINE BIOSCIENCES
  Company Number: US-NEUROCRINE BIOSCIENCES INC.-2025NBI01902

PATIENT
  Sex: Female

DRUGS (3)
  1. INGREZZA [Suspect]
     Active Substance: VALBENAZINE
     Indication: Tardive dyskinesia
     Route: 065
     Dates: end: 2025
  2. INGREZZA [Suspect]
     Active Substance: VALBENAZINE
     Route: 065
     Dates: start: 2023
  3. INGREZZA [Suspect]
     Active Substance: VALBENAZINE
     Route: 065
     Dates: start: 2020

REACTIONS (1)
  - Fatigue [Unknown]
